FAERS Safety Report 5093097-X (Version None)
Quarter: 2006Q3

REPORT INFORMATION
  Report Type: 
  Country: None (occurrence: None)
  Receive Date: 20060828
  Receipt Date: 20060816
  Transmission Date: 20061208
  Serious: No
  Sender: FDA-Public Use
  Company Number: TUK2006A00057

PATIENT
  Age: 77 Year
  Sex: Female

DRUGS (6)
  1. ACTOS [Suspect]
     Indication: DIABETES MELLITUS NON-INSULIN-DEPENDENT
     Dosage: 15 MG, ORAL
     Route: 048
     Dates: start: 20060629, end: 20060704
  2. ASPIRIN [Concomitant]
  3. GLICLAZIDE (GLICLAZIDE) [Concomitant]
  4. LEVOTHYROXINE SODIUM [Concomitant]
  5. LISINOPRIL [Concomitant]
  6. PRAVASTATIN [Concomitant]

REACTIONS (4)
  - CHOKING SENSATION [None]
  - MOUTH ULCERATION [None]
  - THROAT TIGHTNESS [None]
  - VISION BLURRED [None]
